FAERS Safety Report 21104799 (Version 1)
Quarter: 2022Q3

REPORT INFORMATION
  Report Type: Spontaneous
  Country: GB (occurrence: GB)
  Receive Date: 20220720
  Receipt Date: 20220720
  Transmission Date: 20221027
  Serious: Yes (Disabling)
  Sender: FDA-Public Use
  Company Number: GB-BAXTER-2022BAX014053

PATIENT
  Age: 53 Year
  Sex: Female
  Weight: 54 kg

DRUGS (10)
  1. FEXOFENADINE [Suspect]
     Active Substance: FEXOFENADINE HYDROCHLORIDE
     Indication: Hypersensitivity
     Dosage: 1 DOSAGE FORMS DAILY; UNIT DOSE : 1 DOSAGE FORMS , FREQUENCY : 1 , FREQUENCY TIME : 1 DAYS
     Route: 065
     Dates: start: 20220630
  2. FEXOFENADINE [Suspect]
     Active Substance: FEXOFENADINE HYDROCHLORIDE
     Indication: Allergy prophylaxis
  3. PREDNISOLONE [Suspect]
     Active Substance: PREDNISOLONE
     Indication: Product used for unknown indication
     Dosage: 4 DOSAGE FORMS DAILY; UNIT DOSE : 4 DOSAGE FORMS , FREQUENCY : 1 , FREQUENCY TIME : 1 DAYS
     Route: 065
     Dates: start: 20220630
  4. METRONIDAZOLE [Suspect]
     Active Substance: METRONIDAZOLE
     Indication: Ill-defined disorder
     Dosage: UNK
     Route: 065
     Dates: start: 20220630
  5. ALENDRONIC ACID [Concomitant]
     Active Substance: ALENDRONIC ACID
     Indication: Product used for unknown indication
     Dosage: UNIT DOSE : 1 DOSAGE FORMS , FREQUENCY : 1 , FREQUENCY TIME : 1 WEEKS
     Route: 065
     Dates: start: 20210128
  6. LANOLIN\LIGHT MINERAL OIL\PARAFFIN [Concomitant]
     Active Substance: LANOLIN\LIGHT MINERAL OIL\PARAFFIN
     Indication: Product used for unknown indication
     Dosage: USE AS DIRECTED
     Route: 065
     Dates: start: 20210128
  7. DYDROGESTERONE\ESTRADIOL [Concomitant]
     Active Substance: DYDROGESTERONE\ESTRADIOL
     Indication: Product used for unknown indication
     Dosage: 1 DOSAGE FORMS DAILY; UNIT DOSE : 1 DOSAGE FORMS , FREQUENCY : 1 , FREQUENCY TIME : 1 DAYS
     Route: 065
     Dates: start: 20210218
  8. NIFEDIPINE [Concomitant]
     Active Substance: NIFEDIPINE
     Indication: Product used for unknown indication
     Dosage: 1 DOSAGE FORMS DAILY; UNIT DOSE : 1 DOSAGE FORMS , FREQUENCY : 1 , FREQUENCY TIME : 1 DAYS
     Route: 065
     Dates: start: 20210128
  9. OMEPRAZOLE [Concomitant]
     Active Substance: OMEPRAZOLE
     Indication: Product used for unknown indication
     Dosage: 1 DOSAGE FORMS DAILY; UNIT DOSE : 1 DOSAGE FORMS , FREQUENCY : 1 , FREQUENCY TIME : 1 DAYS
     Route: 065
     Dates: start: 20210128
  10. ULTRABASE [Concomitant]
     Indication: Product used for unknown indication
     Dosage: APPLY, FREQUENCY : 4, FREQUENCY TIME : 1 DAYS
     Route: 065
     Dates: start: 20220112

REACTIONS (1)
  - Rash [Recovering/Resolving]

NARRATIVE: CASE EVENT DATE: 20220630
